FAERS Safety Report 8138232-1 (Version None)
Quarter: 2012Q1

REPORT INFORMATION
  Report Type: 
  Country: None (occurrence: None)
  Receive Date: 20120215
  Receipt Date: 20120203
  Transmission Date: 20120608
  Serious: Yes (Hospitalization, Other)
  Sender: FDA-Public Use
  Company Number: PHHY2012DE000916

PATIENT
  Sex: Male
  Weight: 87 kg

DRUGS (11)
  1. EXFORGE HCT [Suspect]
     Dosage: 1 DF, QD
     Route: 048
     Dates: start: 20101108
  2. SIMVASTATIN [Suspect]
     Dosage: 1 DF, QD
     Route: 048
     Dates: start: 20100812
  3. CYNT [Concomitant]
     Dosage: 1 DF, BID
     Route: 048
     Dates: start: 20110211
  4. TORSEMIDE [Concomitant]
     Dosage: 1 DF, QD
     Route: 048
     Dates: start: 20100812
  5. CARVEDILOL [Concomitant]
     Dosage: 1 DF, BID
     Route: 048
     Dates: start: 20100812
  6. RAMIPRIL [Concomitant]
     Dosage: 1 DF, BID
     Route: 048
     Dates: start: 20110211
  7. RASILEZ [Suspect]
     Indication: HYPERTENSION
     Dosage: 1 DF, QD
     Route: 048
     Dates: start: 20101006
  8. EBRANTIL [Concomitant]
     Dosage: 1 DF, QID
     Route: 048
     Dates: start: 20100907
  9. ASPIRIN [Concomitant]
     Dosage: 1 DF, QD
     Route: 048
     Dates: start: 20110228
  10. CLONIDINE [Concomitant]
     Dosage: 150 UG 1 DF, TID
     Route: 048
     Dates: start: 20110211
  11. CLONIDINE [Concomitant]
     Dosage: 250 UG 1 DF, QD
     Route: 048

REACTIONS (3)
  - BLOOD PRESSURE DECREASED [None]
  - ATRIAL FIBRILLATION [None]
  - BLOOD POTASSIUM DECREASED [None]
